FAERS Safety Report 20046536 (Version 1)
Quarter: 2021Q4

REPORT INFORMATION
  Report Type: Spontaneous
  Country: CN (occurrence: CN)
  Receive Date: 20211109
  Receipt Date: 20211109
  Transmission Date: 20220303
  Serious: Yes (Death, Life-Threatening, Other)
  Sender: FDA-Public Use
  Company Number: CN-SUN PHARMACEUTICAL INDUSTRIES LTD-2021R1-316427

PATIENT
  Age: 62 Year
  Sex: Male

DRUGS (4)
  1. CARBOPLATIN [Suspect]
     Active Substance: CARBOPLATIN
     Indication: Chemotherapy
     Dosage: 300 MILLIGRAM/ ON DAYS 2 AND 3, EVERY 3 WEEKS, 3 CYCLES
     Route: 065
     Dates: start: 20190729
  2. PACLITAXEL [Suspect]
     Active Substance: PACLITAXEL
     Indication: Chemotherapy
     Dosage: 200 MILLIGRAM/ ON DAYS 1 AND 8, EVERY 3 WEEKS, 3 CYCLES
     Route: 065
     Dates: start: 20190729
  3. NIVOLUMAB [Suspect]
     Active Substance: NIVOLUMAB
     Indication: Chemotherapy
     Dosage: 200 MILLIGRAM/ ON DAY 1, EVERY 2 WEEKS, 3 CYCLES
     Route: 065
     Dates: start: 20190729
  4. AMLODIPINE [Concomitant]
     Active Substance: AMLODIPINE BESYLATE
     Indication: Hypertension
     Dosage: 5 MILLIGRAM, DAILY
     Route: 048

REACTIONS (2)
  - Acute lung injury [Fatal]
  - Vascular graft complication [Fatal]

NARRATIVE: CASE EVENT DATE: 20191014
